FAERS Safety Report 23925381 (Version 1)
Quarter: 2024Q2

REPORT INFORMATION
  Report Type: Spontaneous
  Country: US (occurrence: US)
  Receive Date: 20240531
  Receipt Date: 20240531
  Transmission Date: 20240716
  Serious: No
  Sender: FDA-Public Use
  Company Number: US-BRISTOL-MYERS SQUIBB COMPANY-2024-087321

PATIENT
  Age: 74 Year
  Sex: Female

DRUGS (1)
  1. ORENCIA [Suspect]
     Active Substance: ABATACEPT
     Indication: Rheumatoid arthritis
     Dosage: FREQUENCY: INFUSE 750MG INTRAVENOUSLY AT WEEK 0, 2,4, THEN EVERY 4 WEEKS THEREAFTER.
     Route: 042
     Dates: start: 202210

REACTIONS (1)
  - Urinary tract infection [Unknown]
